FAERS Safety Report 22374110 (Version 2)
Quarter: 2023Q4

REPORT INFORMATION
  Report Type: Report from Study
  Country: CA (occurrence: CA)
  Receive Date: 20230526
  Receipt Date: 20231003
  Transmission Date: 20240110
  Serious: Yes (Other)
  Sender: FDA-Public Use
  Company Number: CA-TAKEDA-2023TUS051669

PATIENT
  Sex: Male

DRUGS (5)
  1. VEDOLIZUMAB [Suspect]
     Active Substance: VEDOLIZUMAB
     Indication: Crohn^s disease
     Dosage: 300 MILLIGRAM
     Route: 042
     Dates: start: 20220823
  2. VEDOLIZUMAB [Suspect]
     Active Substance: VEDOLIZUMAB
     Dosage: 300 MILLIGRAM
     Route: 042
  3. ASACOL [Concomitant]
     Active Substance: MESALAMINE
     Dosage: 1.2 GRAM
     Dates: start: 20180603
  4. PENTASA [Concomitant]
     Active Substance: MESALAMINE
     Dosage: 1.2 GRAM, BID
     Route: 048
     Dates: start: 20200202
  5. Salofalk [Concomitant]
     Dosage: 1500 MILLIGRAM, BID
     Route: 048
     Dates: start: 20210401

REACTIONS (1)
  - Crohn^s disease [Recovering/Resolving]
